FAERS Safety Report 6342409-5 (Version None)
Quarter: 2009Q3

REPORT INFORMATION
  Report Type: 
  Country: None (occurrence: None)
  Receive Date: 20090908
  Receipt Date: 20090826
  Transmission Date: 20100115
  Serious: Yes (Hospitalization, Other)
  Sender: FDA-Public Use
  Company Number: US-ELI_LILLY_AND_COMPANY-US200908005764

PATIENT
  Sex: Male
  Weight: 118.37 kg

DRUGS (10)
  1. BYETTA [Suspect]
     Indication: TYPE 2 DIABETES MELLITUS
     Dosage: 5 UG, 2/D
     Route: 058
     Dates: start: 20090701, end: 20090801
  2. BYETTA [Suspect]
     Dosage: 10 UG, 2/D
     Route: 058
     Dates: start: 20090801
  3. GLUCOPHAGE XR [Concomitant]
     Dosage: 2000 MG, DAILY (1/D)
     Route: 048
     Dates: end: 20090801
  4. GLIPIZIDE [Concomitant]
     Indication: TYPE 2 DIABETES MELLITUS
  5. PLAVIX [Concomitant]
     Dosage: 75 MG, DAILY (1/D)
     Route: 048
  6. ASPIRIN [Concomitant]
     Dosage: 81 MG, DAILY (1/D)
     Route: 048
  7. HYZAAR [Concomitant]
     Dosage: UNK, DAILY (1/D)
     Route: 048
  8. PRAVASTATIN [Concomitant]
     Dosage: 20 MG, DAILY (1/D)
     Route: 048
  9. NEXIUM [Concomitant]
     Dosage: 40 MG, 2/D
     Route: 048
  10. LEVEMIR [Concomitant]
     Dosage: 60 U, 2/D

REACTIONS (9)
  - ASTHENIA [None]
  - CATHETER SITE HAEMATOMA [None]
  - CORONARY ARTERY OCCLUSION [None]
  - DIZZINESS [None]
  - DYSPNOEA [None]
  - HEART SOUNDS ABNORMAL [None]
  - MUSCLE SPASMS [None]
  - OFF LABEL USE [None]
  - PERIPHERAL VASCULAR DISORDER [None]
